FAERS Safety Report 15487083 (Version 1)
Quarter: 2018Q4

REPORT INFORMATION
  Report Type: Spontaneous
  Country: IT (occurrence: IT)
  Receive Date: 20181011
  Receipt Date: 20181011
  Transmission Date: 20190205
  Serious: Yes (Hospitalization, Other)
  Sender: FDA-Public Use
  Company Number: IT-AUROBINDO-AUR-APL-2018-049308

PATIENT
  Age: 56 Year
  Sex: Male

DRUGS (1)
  1. PARACETAMOL [Suspect]
     Active Substance: ACETAMINOPHEN
     Indication: ANTIPYRESIS
     Dosage: 1 DOSAGE FORM IN TOTAL
     Route: 048
     Dates: start: 20180815, end: 20180815

REACTIONS (6)
  - Pruritus [Unknown]
  - Urticaria [Unknown]
  - Hypotension [Unknown]
  - Rash morbilliform [Unknown]
  - Dyspnoea [Unknown]
  - Anaphylactic shock [Unknown]

NARRATIVE: CASE EVENT DATE: 20180815
